FAERS Safety Report 6524188-1 (Version None)
Quarter: 2009Q4

REPORT INFORMATION
  Report Type: 
  Country: None (occurrence: None)
  Receive Date: 20091230
  Receipt Date: 20091230
  Transmission Date: 20100525
  Serious: No
  Sender: FDA-Public Use
  Company Number: None

PATIENT
  Age: 52 Year
  Sex: Female
  Weight: 43.9989 kg

DRUGS (6)
  1. COLD REMEDY NASAL GEL [Suspect]
     Indication: LYMPHADENOPATHY
     Dosage: Q 3 HOURS - 2 DAYS
     Dates: start: 20091111, end: 20091113
  2. COLD REMEDY NASAL GEL [Suspect]
     Indication: NASAL CONGESTION
     Dosage: Q 3 HOURS - 2 DAYS
     Dates: start: 20091111, end: 20091113
  3. TOPAMAX [Concomitant]
  4. CYMBALTA [Concomitant]
  5. CELEBREX [Concomitant]
  6. AMBIEN [Concomitant]

REACTIONS (2)
  - AGEUSIA [None]
  - ANOSMIA [None]
